FAERS Safety Report 18380818 (Version 1)
Quarter: 2020Q4

REPORT INFORMATION
  Report Type: Spontaneous
  Country: PT (occurrence: PT)
  Receive Date: 20201014
  Receipt Date: 20201014
  Transmission Date: 20210114
  Serious: Yes (Hospitalization, Other)
  Sender: FDA-Public Use
  Company Number: PT-AUROBINDO-AUR-APL-2014-10052

PATIENT
  Age: 42 Year
  Sex: Female

DRUGS (6)
  1. ASPIRIN. [Concomitant]
     Active Substance: ASPIRIN
     Indication: PRODUCT USED FOR UNKNOWN INDICATION
     Dosage: 100 MG, UNK
     Route: 065
     Dates: start: 2009
  2. BISOPROLOL [Concomitant]
     Active Substance: BISOPROLOL
     Indication: PRODUCT USED FOR UNKNOWN INDICATION
     Dosage: 25 MG, UNK
     Route: 065
     Dates: start: 2009
  3. LISINOPRIL TABLET [Suspect]
     Active Substance: LISINOPRIL
     Indication: MITRAL VALVE INCOMPETENCE
     Dosage: 5 MG, ONCE A DAY
     Route: 048
     Dates: start: 200906
  4. FLUTICASONE PROPIONATE AND SALMETEROL [Concomitant]
     Active Substance: FLUTICASONE PROPIONATE\SALMETEROL XINAFOATE
     Indication: ASTHMA
     Dosage: 50/250 , TWO TIMES A DAY
     Route: 065
  5. LISINOPRIL TABLET [Suspect]
     Active Substance: LISINOPRIL
     Indication: TRICUSPID VALVE INCOMPETENCE
  6. MOMETASONE [Concomitant]
     Active Substance: MOMETASONE
     Indication: RHINITIS
     Dosage: 100 MILLIGRAM, TWO TIMES A DAY
     Route: 045

REACTIONS (1)
  - Angioedema [Recovered/Resolved]

NARRATIVE: CASE EVENT DATE: 201201
